FAERS Safety Report 6651083-X (Version None)
Quarter: 2010Q1

REPORT INFORMATION
  Report Type: 
  Country: None (occurrence: None)
  Receive Date: 20100325
  Receipt Date: 20100315
  Transmission Date: 20100710
  Serious: Yes (Hospitalization)
  Sender: FDA-Public Use
  Company Number: FR-PFIZER INC-2010033386

PATIENT
  Age: 27 Year
  Sex: Male

DRUGS (2)
  1. XANAX [Suspect]
     Indication: DEPRESSION
     Dosage: 0.25 UNK, 1X/DAY
     Route: 048
     Dates: start: 20100213, end: 20100222
  2. DEROXAT [Suspect]
     Indication: DEPRESSION
     Dosage: 20 MG, 1X/DAY
     Route: 048
     Dates: start: 20100216, end: 20100222

REACTIONS (2)
  - HEPATITIS ACUTE [None]
  - JAUNDICE [None]
